FAERS Safety Report 4597223-8 (Version None)
Quarter: 2005Q1

REPORT INFORMATION
  Report Type: 
  Country: None (occurrence: None)
  Receive Date: 20050301
  Receipt Date: 20050216
  Transmission Date: 20050727
  Serious: Yes (Hospitalization, Other)
  Sender: FDA-Public Use
  Company Number: 2005033656

PATIENT
  Sex: Female

DRUGS (1)
  1. NEURONTIN [Suspect]
     Indication: ILL-DEFINED DISORDER

REACTIONS (5)
  - DEAFNESS [None]
  - DEAFNESS NEUROSENSORY [None]
  - EAR DISCOMFORT [None]
  - TREMOR [None]
  - VAGINAL HAEMORRHAGE [None]
